FAERS Safety Report 23752896 (Version 1)
Quarter: 2024Q2

REPORT INFORMATION
  Report Type: Spontaneous
  Country: FR (occurrence: FR)
  Receive Date: 20240417
  Receipt Date: 20240417
  Transmission Date: 20240716
  Serious: Yes (Life-Threatening)
  Sender: FDA-Public Use
  Company Number: FR-ANIPHARMA-2024-FR-000064

PATIENT
  Sex: Female
  Weight: 104 kg

DRUGS (11)
  1. CANDESARTAN CILEXETIL [Suspect]
     Active Substance: CANDESARTAN CILEXETIL
     Indication: Angina pectoris
     Dosage: 16 MG DAILY
  2. EXEMESTANE [Suspect]
     Active Substance: EXEMESTANE
     Dosage: 1 DF DAILY
     Dates: start: 202401, end: 202403
  3. BISOPROLOL [Suspect]
     Active Substance: BISOPROLOL\BISOPROLOL FUMARATE
     Dosage: 10 MG DAILY
  4. DAPAGLIFLOZIN [Suspect]
     Active Substance: DAPAGLIFLOZIN
     Dosage: 10 MG DAILY
     Route: 048
  5. GOSERELIN [Suspect]
     Active Substance: GOSERELIN
     Dosage: 1 DF UNK
     Route: 058
     Dates: start: 202312, end: 202403
  6. ATORVASTATIN [Suspect]
     Active Substance: ATORVASTATIN
     Dosage: 10 MG DAILY
  7. TAMOXIFEN [Suspect]
     Active Substance: TAMOXIFEN
     Dates: start: 2020, end: 202312
  8. ZOPICLONE [Suspect]
     Active Substance: ZOPICLONE
     Dosage: 7.5 MG DAILY
     Dates: end: 202403
  9. ALPRAZOLAM [Suspect]
     Active Substance: ALPRAZOLAM
     Dosage: .25 MG INT
     Dates: end: 202403
  10. ASPIRIN [Suspect]
     Active Substance: ASPIRIN
     Dosage: 1 DF DAILY
     Dates: end: 202403
  11. NITROGLYCERIN [Suspect]
     Active Substance: NITROGLYCERIN
     Dosage: 2 DF INT

REACTIONS (1)
  - Ischaemic stroke [Unknown]

NARRATIVE: CASE EVENT DATE: 20240302
